FAERS Safety Report 4497995-7 (Version None)
Quarter: 2004Q4

REPORT INFORMATION
  Report Type: 
  Country: None (occurrence: None)
  Receive Date: 20041109
  Receipt Date: 20041109
  Transmission Date: 20050328
  Serious: Yes (Life-Threatening)
  Sender: FDA-Public Use
  Company Number: None

PATIENT
  Age: 43 Year
  Sex: Male
  Weight: 110 kg

DRUGS (8)
  1. LISINOPRIL [Suspect]
     Indication: HYPERTENSION
     Dosage: 40MG ONCE DAILY ORAL
     Route: 048
  2. HEMORRHOIDAL [Concomitant]
  3. HEMORRHOIDAL/HC [Concomitant]
  4. HYDROCHLOROTHIAZIDE [Concomitant]
  5. IBUPROFEN [Concomitant]
  6. METOPROLOL TARTRATE [Concomitant]
  7. OMEPRAZOLE [Concomitant]
  8. OXYCODONE HCL [Concomitant]

REACTIONS (5)
  - CHOKING [None]
  - DYSPHONIA [None]
  - DYSPNOEA [None]
  - LOCALISED OEDEMA [None]
  - PHARYNGOLARYNGEAL PAIN [None]
